FAERS Safety Report 11777725 (Version 2)
Quarter: 2015Q4

REPORT INFORMATION
  Report Type: Report from Study
  Country: US (occurrence: US)
  Receive Date: 20151125
  Receipt Date: 20151208
  Transmission Date: 20160304
  Serious: Yes (Other)
  Sender: FDA-Public Use
  Company Number: US-ABBVIE-15P-163-1500641-00

PATIENT
  Age: 24 Year
  Sex: Female

DRUGS (9)
  1. LUPRON DEPOT [Suspect]
     Active Substance: LEUPROLIDE ACETATE
     Indication: ENDOMETRIOSIS
     Route: 030
     Dates: start: 201405, end: 201410
  2. MELATONIN [Concomitant]
     Active Substance: MELATONIN
     Indication: VITAMIN SUPPLEMENTATION
     Dosage: UNKNOWN DOSE ONCE PER WEEK
     Route: 048
  3. LUPRON DEPOT [Suspect]
     Active Substance: LEUPROLIDE ACETATE
     Indication: ENDOMETRIOSIS
     Dosage: ONCE
     Route: 030
     Dates: start: 201410, end: 201410
  4. KLONOPIN [Concomitant]
     Active Substance: CLONAZEPAM
     Indication: DEPRESSION
  5. TRAMADOL. [Concomitant]
     Active Substance: TRAMADOL
     Indication: PAIN
     Dosage: 1 - 2 AS NEEDED
     Route: 048
  6. VALERIAN ROOT [Concomitant]
     Active Substance: VALERIAN
     Indication: VITAMIN SUPPLEMENTATION
     Dosage: UNKNOWN DOSE 3 TIMES A WEEK
     Route: 048
  7. MULITVITAMIN [Concomitant]
     Indication: PRODUCT USED FOR UNKNOWN INDICATION
     Dosage: DAILY
  8. ESTRADIOL. [Concomitant]
     Active Substance: ESTRADIOL
     Indication: HORMONE REPLACEMENT THERAPY
     Dates: start: 201405, end: 201410
  9. KLONOPIN [Concomitant]
     Active Substance: CLONAZEPAM
     Indication: ANXIETY
     Dosage: DAILY
     Route: 048
     Dates: start: 2008

REACTIONS (7)
  - Endometriosis [Recovered/Resolved]
  - Adnexa uteri pain [Recovered/Resolved]
  - Pelvic pain [Not Recovered/Not Resolved]
  - Endometriosis [Not Recovered/Not Resolved]
  - Ovarian cyst [Unknown]
  - Uterine leiomyoma [Unknown]
  - Depression [Not Recovered/Not Resolved]

NARRATIVE: CASE EVENT DATE: 20141126
